FAERS Safety Report 13805543 (Version 2)
Quarter: 2017Q3

REPORT INFORMATION
  Report Type: Report from Study
  Country: US (occurrence: US)
  Receive Date: 20170728
  Receipt Date: 20170804
  Transmission Date: 20171127
  Serious: Yes (Hospitalization)
  Sender: FDA-Public Use
  Company Number: PHHO2017US011015

PATIENT

DRUGS (4)
  1. PREDNISONE. [Concomitant]
     Active Substance: PREDNISONE
     Indication: GRAFT VERSUS HOST DISEASE
     Dosage: 5 MG, QD
     Route: 065
     Dates: start: 20160511
  2. BUDESONE [Concomitant]
     Indication: GRAFT VERSUS HOST DISEASE
     Dosage: 3 MG, QD
     Route: 065
     Dates: start: 20160505
  3. INC424A [Suspect]
     Active Substance: RUXOLITINIB
     Indication: GRAFT VERSUS HOST DISEASE
     Dosage: 5 MG, BID
     Route: 048
     Dates: start: 20170512
  4. TACROLIMUS. [Concomitant]
     Active Substance: TACROLIMUS
     Indication: GRAFT VERSUS HOST DISEASE
     Dosage: 1.5 MG, BID
     Route: 065
     Dates: start: 20160511

REACTIONS (1)
  - Chest wall tumour [Not Recovered/Not Resolved]

NARRATIVE: CASE EVENT DATE: 20170714
